FAERS Safety Report 13839742 (Version 1)
Quarter: 2017Q3

REPORT INFORMATION
  Report Type: Spontaneous
  Country: US (occurrence: US)
  Receive Date: 20170805
  Receipt Date: 20170805
  Transmission Date: 20171127
  Serious: Yes (Death)
  Sender: FDA-Public Use
  Company Number: None

PATIENT
  Age: 76 Year
  Sex: Male

DRUGS (10)
  1. MIDAZOLAM [Concomitant]
     Active Substance: MIDAZOLAM HYDROCHLORIDE
  2. INSULIN ASPART [Suspect]
     Active Substance: INSULIN ASPART
     Indication: HYPERGLYCAEMIA
     Route: 058
     Dates: start: 20161021, end: 20161205
  3. FENTANYL. [Concomitant]
     Active Substance: FENTANYL
  4. FUROSEMIDE. [Concomitant]
     Active Substance: FUROSEMIDE
  5. LACOSAMIDE. [Concomitant]
     Active Substance: LACOSAMIDE
  6. MEROPENEM. [Concomitant]
     Active Substance: MEROPENEM
  7. METHYLPREDNISOLONE. [Concomitant]
     Active Substance: METHYLPREDNISOLONE
  8. LEVETIRACETAM. [Concomitant]
     Active Substance: LEVETIRACETAM
  9. VANCOMYCIN [Concomitant]
     Active Substance: VANCOMYCIN
  10. LEVOFLOXACIN. [Concomitant]
     Active Substance: LEVOFLOXACIN

REACTIONS (6)
  - Varices oesophageal [None]
  - Coagulopathy [None]
  - Gastric varices [None]
  - Multiple organ dysfunction syndrome [None]
  - Blood glucose increased [None]
  - Nervous system disorder [None]

NARRATIVE: CASE EVENT DATE: 20161207
